FAERS Safety Report 23341176 (Version 2)
Quarter: 2024Q1

REPORT INFORMATION
  Report Type: Report from Study
  Country: US (occurrence: US)
  Receive Date: 20231227
  Receipt Date: 20240118
  Transmission Date: 20240410
  Serious: Yes (Hospitalization)
  Sender: FDA-Public Use
  Company Number: US-002147023-NVSC2023US270736

PATIENT
  Age: 1 Year
  Sex: Male
  Weight: 9.18 kg

DRUGS (3)
  1. ZOLGENSMA [Suspect]
     Active Substance: ONASEMNOGENE ABEPARVOVEC-XIOI
     Indication: Spinal muscular atrophy
     Dosage: 52.3 ML
     Route: 042
     Dates: start: 20220804, end: 20220804
  2. PREDNISONE [Concomitant]
     Active Substance: PREDNISONE
     Indication: Product used for unknown indication
     Dosage: 1 MG/KG, BID
     Route: 048
  3. PREDNISONE [Concomitant]
     Active Substance: PREDNISONE
     Dosage: 10 MG, QD
     Route: 065
     Dates: start: 20221024

REACTIONS (7)
  - Vomiting [Recovered/Resolved]
  - Platelet count decreased [Recovered/Resolved]
  - Acute respiratory failure [Recovered/Resolved]
  - Acute respiratory failure [Recovered/Resolved]
  - Parainfluenzae virus infection [Recovered/Resolved]
  - Pneumonia bacterial [Recovered/Resolved]
  - Respiratory syncytial virus test [Recovered/Resolved]

NARRATIVE: CASE EVENT DATE: 20220808
